FAERS Safety Report 12467420 (Version 1)
Quarter: 2016Q2

REPORT INFORMATION
  Report Type: Spontaneous
  Country: US (occurrence: US)
  Receive Date: 20160615
  Receipt Date: 20160615
  Transmission Date: 20160815
  Serious: No
  Sender: FDA-Public Use
  Company Number: US-TEVA-573079USA

PATIENT
  Age: 87 Year
  Sex: Female

DRUGS (1)
  1. CIPROFLOXACIN. [Suspect]
     Active Substance: CIPROFLOXACIN
     Indication: URINARY TRACT INFECTION
     Dates: start: 20150417

REACTIONS (4)
  - Fatigue [Unknown]
  - Tendonitis [Unknown]
  - Muscle disorder [Unknown]
  - Nausea [Unknown]

NARRATIVE: CASE EVENT DATE: 201505
